FAERS Safety Report 15196185 (Version 1)
Quarter: 2018Q3

REPORT INFORMATION
  Report Type: Spontaneous
  Country: JP (occurrence: JP)
  Receive Date: 20180725
  Receipt Date: 20180725
  Transmission Date: 20181010
  Serious: Yes (Death, Hospitalization, Other)
  Sender: FDA-Public Use
  Company Number: JP-SA-2018SA122065

PATIENT
  Age: 65 Year
  Sex: Male
  Weight: 54.7 kg

DRUGS (5)
  1. IRINOTECAN HYDROCHLORIDE. [Suspect]
     Active Substance: IRINOTECAN HYDROCHLORIDE
     Indication: COLON CANCER
     Dosage: 160 MG, 1X
     Route: 042
     Dates: start: 20180403, end: 20180403
  2. ZALTRAP [Suspect]
     Active Substance: ZIV-AFLIBERCEPT
     Indication: COLON CANCER
     Dosage: 260 MG, 1X
     Route: 042
     Dates: start: 20180403, end: 20180403
  3. FLUOROURACIL. [Suspect]
     Active Substance: FLUOROURACIL
     Indication: COLON CANCER
     Dosage: 2500 MG, 1X
     Route: 065
     Dates: start: 20180403, end: 20180403
  4. LEVOFOLINATE [CALCIUM LEVOFOLINATE] [Concomitant]
     Indication: COLON CANCER
     Dosage: 200 MG, 1X
     Route: 042
     Dates: start: 20180403, end: 20180403
  5. ELPLAT [Concomitant]
     Active Substance: OXALIPLATIN
     Indication: PRODUCT USED FOR UNKNOWN INDICATION
     Route: 065

REACTIONS (1)
  - Interstitial lung disease [Fatal]

NARRATIVE: CASE EVENT DATE: 20180418
